FAERS Safety Report 7233052-4 (Version None)
Quarter: 2011Q1

REPORT INFORMATION
  Report Type: 
  Country: None (occurrence: None)
  Receive Date: 20110119
  Receipt Date: 20110106
  Transmission Date: 20110831
  Serious: No
  Sender: FDA-Public Use
  Company Number: US-B.I. PHARMACEUTICALS,INC./RIDGEFIELD-2011-BP-00760BP

PATIENT
  Sex: Male

DRUGS (4)
  1. CHEMO [Concomitant]
     Indication: LUNG NEOPLASM MALIGNANT
  2. PRADAXA [Suspect]
     Indication: ATRIAL FIBRILLATION
     Dosage: 300 MG
     Route: 048
  3. ARICEPT [Concomitant]
     Indication: DEMENTIA
  4. VYTORIN [Concomitant]
     Indication: BLOOD CHOLESTEROL INCREASED

REACTIONS (2)
  - SOMNOLENCE [None]
  - RESTLESSNESS [None]
